FAERS Safety Report 7525554-8 (Version None)
Quarter: 2011Q2

REPORT INFORMATION
  Report Type: 
  Country: None (occurrence: None)
  Receive Date: 20110526
  Receipt Date: 20110513
  Transmission Date: 20111010
  Serious: Yes (Hospitalization, Other)
  Sender: FDA-Public Use
  Company Number: 2011MA005882

PATIENT
  Age: 74 Year
  Sex: Male

DRUGS (11)
  1. DICLOFENAC SODIUM [Suspect]
     Dosage: 100 MG
  2. OMEPRAZOLE [Concomitant]
  3. PREDNISONE [Suspect]
     Dosage: 40 MG;QD;PO
     Route: 048
  4. AMIODARONE HCL [Concomitant]
  5. FUROSEMIDE [Concomitant]
  6. SIMVASTATIN [Concomitant]
  7. RAMIPRIL [Concomitant]
  8. CARVEDILOL [Concomitant]
  9. METFORMIN HCL [Concomitant]
  10. WARFARIN SODIUM [Concomitant]
  11. COLCHICINE [Suspect]
     Dosage: 1 MG;PO
     Route: 048

REACTIONS (6)
  - LARGE INTESTINE PERFORATION [None]
  - ABDOMINAL PAIN UPPER [None]
  - GASTROINTESTINAL TOXICITY [None]
  - LEUKOCYTOSIS [None]
  - RENAL FAILURE ACUTE [None]
  - CHEST PAIN [None]
